FAERS Safety Report 14999530 (Version 1)
Quarter: 2018Q2

REPORT INFORMATION
  Report Type: Spontaneous
  Country: NL (occurrence: NL)
  Receive Date: 20180612
  Receipt Date: 20180612
  Transmission Date: 20180711
  Serious: Yes (Other)
  Sender: FDA-Public Use
  Company Number: NL-ACCORD-068013

PATIENT
  Age: 45 Year
  Sex: Male
  Weight: 160 kg

DRUGS (4)
  1. COLCHICINE. [Concomitant]
     Active Substance: COLCHICINE
     Dosage: (UP TO 2DD 5MG)
  2. NAPROXEN. [Concomitant]
     Active Substance: NAPROXEN
  3. IBUPROFEN. [Concomitant]
     Active Substance: IBUPROFEN
     Dosage: ON PAIN CONDUCTION UP TO 600 MG DD
  4. ALLOPURINOL. [Suspect]
     Active Substance: ALLOPURINOL
     Indication: GOUT
     Dosage: STRENGTH: 300 MG?1DD
     Dates: start: 201510, end: 20171103

REACTIONS (15)
  - Back pain [Recovered/Resolved]
  - Weight increased [Not Recovered/Not Resolved]
  - Skin exfoliation [Recovering/Resolving]
  - Tendonitis [Recovered/Resolved]
  - Dry mouth [Recovered/Resolved]
  - Urine analysis abnormal [Recovered/Resolved]
  - Erectile dysfunction [Not Recovered/Not Resolved]
  - Feeling abnormal [Recovered/Resolved]
  - Furuncle [Recovering/Resolving]
  - Libido decreased [Not Recovered/Not Resolved]
  - Micturition frequency decreased [Recovered/Resolved]
  - Hypoaesthesia [Unknown]
  - Deafness [Recovered/Resolved]
  - Hepatic enzyme increased [Unknown]
  - Musculoskeletal stiffness [Recovered/Resolved]

NARRATIVE: CASE EVENT DATE: 20160101
